FAERS Safety Report 15362324 (Version 4)
Quarter: 2020Q2

REPORT INFORMATION
  Report Type: Report from Study
  Country: DE (occurrence: DE)
  Receive Date: 20180907
  Receipt Date: 20200422
  Transmission Date: 20200713
  Serious: Yes (Hospitalization)
  Sender: FDA-Public Use
  Company Number: DE-SA-2018SA061473

PATIENT
  Age: 39 Year
  Sex: Female
  Weight: 72 kg

DRUGS (12)
  1. LEVOTHYROXINE SODIUM. [Concomitant]
     Active Substance: LEVOTHYROXINE SODIUM
     Indication: HYPOTHYROIDISM
     Dosage: 75 UG,QD
     Route: 048
     Dates: start: 20161122, end: 20171124
  2. ORTHOMOL IMMUN [Concomitant]
     Active Substance: IRON\MINERALS\VITAMINS
     Indication: NUTRITIONAL SUPPLEMENTATION
     Dosage: UNK, QD
     Route: 048
     Dates: start: 20160212
  3. ZOPICLONE [Concomitant]
     Active Substance: ZOPICLONE
     Dosage: 7.5 MG,HS
     Route: 048
     Dates: start: 20160429
  4. DEKRISTOL [Concomitant]
     Active Substance: CHOLECALCIFEROL
     Indication: VITAMIN D DEFICIENCY
     Dosage: 20000 IU,QW
     Route: 048
     Dates: start: 20170207
  5. SPASMEX [TROSPIUM CHLORIDE] [Concomitant]
     Active Substance: TROSPIUM CHLORIDE
     Indication: MUSCLE SPASTICITY
     Dosage: 15 MG, QD
     Route: 048
     Dates: start: 20170220, end: 20171124
  6. ALEMTUZUMAB [Suspect]
     Active Substance: ALEMTUZUMAB
     Indication: MULTIPLE SCLEROSIS
     Dosage: 12 MG
     Route: 041
     Dates: start: 20170222, end: 20170224
  7. LAMOTRIGINE. [Concomitant]
     Active Substance: LAMOTRIGINE
     Indication: EPILEPSY
     Dosage: 50 MG, BID
     Route: 048
     Dates: start: 20050101
  8. SALBUTAMOL [Concomitant]
     Active Substance: ALBUTEROL
     Indication: ASTHMA
     Dosage: UNK
     Route: 055
  9. BALDRIAN [VALERIANA OFFICINALIS] [Concomitant]
     Active Substance: VALERIAN
     Indication: SLEEP DISORDER
     Dosage: UNK, PRN
     Route: 048
     Dates: start: 20160729
  10. TIZANIDINE. [Concomitant]
     Active Substance: TIZANIDINE
     Indication: MUSCLE SPASTICITY
     Dosage: 2 MG, 1-1-1-1/2
     Route: 048
     Dates: start: 20171124
  11. ALEMTUZUMAB [Suspect]
     Active Substance: ALEMTUZUMAB
     Dosage: 12 MG
     Route: 041
     Dates: start: 20160215, end: 20160219
  12. SALBUTAMOL [Concomitant]
     Active Substance: ALBUTEROL
     Dosage: UNK

REACTIONS (4)
  - Muscle spasticity [Not Recovered/Not Resolved]
  - Herpes zoster [Unknown]
  - Herpes zoster [Recovered/Resolved]
  - Hyperthyroidism [Not Recovered/Not Resolved]

NARRATIVE: CASE EVENT DATE: 20171124
